FAERS Safety Report 8241605-X (Version None)
Quarter: 2012Q1

REPORT INFORMATION
  Report Type: 
  Country: None (occurrence: None)
  Receive Date: 20120328
  Receipt Date: 20120320
  Transmission Date: 20120608
  Serious: Yes (Other)
  Sender: FDA-Public Use
  Company Number: BR-ASTRAZENECA-2012SE19314

PATIENT
  Age: 70 Year
  Sex: Male

DRUGS (1)
  1. ATACAND [Suspect]
     Indication: HYPERTENSION
     Dosage: 16 MG UNKNOWN
     Route: 048
     Dates: start: 20070101

REACTIONS (2)
  - ARRHYTHMIA [None]
  - DIABETES MELLITUS [None]
